FAERS Safety Report 7961254-8 (Version None)
Quarter: 2011Q4

REPORT INFORMATION
  Report Type: 
  Country: None (occurrence: None)
  Receive Date: 20111201
  Receipt Date: 20111201
  Transmission Date: 20120403
  Serious: Yes (Hospitalization)
  Sender: FDA-Public Use
  Company Number: None

PATIENT
  Age: 58 Year
  Sex: Male

DRUGS (5)
  1. LEVOTHYROXINE SODIUM [Concomitant]
  2. DEXAMETHOASONE/RITUXIMAB [Suspect]
     Indication: WALDENSTROM'S MACROGLOBULINAEMIA
     Dosage: 40MG DEX 375MG/M2RIT IV
     Route: 042
     Dates: start: 20111114
  3. POMALIDOMIDE [Suspect]
     Indication: WALDENSTROM'S MACROGLOBULINAEMIA
     Dosage: 1 MG QD PO
     Route: 048
     Dates: start: 20111114
  4. OXYCODONE HCL [Concomitant]
  5. ACYCLOVIR [Concomitant]

REACTIONS (6)
  - FALL [None]
  - GRAND MAL CONVULSION [None]
  - INTERNATIONAL NORMALISED RATIO INCREASED [None]
  - BLOOD GLUCOSE INCREASED [None]
  - HAEMOGLOBIN DECREASED [None]
  - HAEMATOCRIT DECREASED [None]
